FAERS Safety Report 13358784 (Version 1)
Quarter: 2017Q1

REPORT INFORMATION
  Report Type: Not Available
  Country: None (occurrence: US)
  Receive Date: 20170322
  Receipt Date: 20170322
  Transmission Date: 20170429
  Serious: No
  Sender: FDA-Public Use
  Company Number: US-AKORN-51863

PATIENT
  Age: 88 Year
  Sex: Female

DRUGS (1)
  1. LATANOPROST OPHTHALMIC SOLUTION [Suspect]
     Active Substance: LATANOPROST

REACTIONS (3)
  - Eye pruritus [None]
  - Eye irritation [None]
  - Vision blurred [None]
